FAERS Safety Report 8370440-7 (Version None)
Quarter: 2012Q2

REPORT INFORMATION
  Report Type: 
  Country: None (occurrence: None)
  Receive Date: 20120518
  Receipt Date: 20120511
  Transmission Date: 20120825
  Serious: Yes (Hospitalization)
  Sender: FDA-Public Use
  Company Number: DE-UCBSA-057295

PATIENT
  Age: 89 Year
  Sex: Female
  Weight: 85 kg

DRUGS (4)
  1. CLONAZEPAM [Suspect]
     Dosage: 0.5 , 1 TABLET
     Route: 048
  2. RISPERDAL [Suspect]
     Dosage: 1 TABLET
     Route: 048
  3. KEPPRA [Suspect]
     Dosage: 750 MG, 1 TABLET
     Route: 048
  4. PHENYTOIN SODIUM CAP [Suspect]
     Dosage: 1 TABLET
     Route: 048

REACTIONS (2)
  - SOMNOLENCE [None]
  - TOXICITY TO VARIOUS AGENTS [None]
